FAERS Safety Report 21766505 (Version 4)
Quarter: 2023Q2

REPORT INFORMATION
  Report Type: Spontaneous
  Country: US (occurrence: US)
  Receive Date: 20221222
  Receipt Date: 20230525
  Transmission Date: 20230722
  Serious: No
  Sender: FDA-Public Use
  Company Number: US-PFIZER INC-PV202200129350

PATIENT
  Age: 65 Year
  Sex: Female

DRUGS (1)
  1. BOSULIF [Suspect]
     Active Substance: BOSUTINIB MONOHYDRATE
     Indication: Chronic myeloid leukaemia
     Dosage: 100 MG, DAILY (TAKE 100 MG BY MOUTH DAILY)
     Route: 048
     Dates: end: 20220106

REACTIONS (3)
  - Off label use [Unknown]
  - COVID-19 [Unknown]
  - Malaise [Unknown]
